FAERS Safety Report 18009210 (Version 1)
Quarter: 2020Q3

REPORT INFORMATION
  Report Type: Spontaneous
  Country: US (occurrence: US)
  Receive Date: 20200710
  Receipt Date: 20200710
  Transmission Date: 20201103
  Serious: No
  Sender: FDA-Public Use
  Company Number: US-SAOL THERAPEUTICS-2020SAO00113

PATIENT
  Sex: Male

DRUGS (4)
  1. LIORESAL [Suspect]
     Active Substance: BACLOFEN
     Dosage: 50.1 ?G, \DAY
     Route: 037
     Dates: start: 20200415
  2. DILAUDID [Suspect]
     Active Substance: HYDROMORPHONE HYDROCHLORIDE
     Dosage: 0.1002 MG, \DAY
     Route: 037
     Dates: start: 20200412, end: 20200415
  3. LIORESAL [Suspect]
     Active Substance: BACLOFEN
     Dosage: 70.1 ?G, \DAY (ALSO REPORTED AS 70 ?G)
     Route: 037
     Dates: end: 20200415
  4. DILAUDID [Suspect]
     Active Substance: HYDROMORPHONE HYDROCHLORIDE
     Dosage: 0.04906 ?G, \DAY
     Route: 037
     Dates: start: 20200415

REACTIONS (2)
  - Pain [Unknown]
  - Drug intolerance [Unknown]

NARRATIVE: CASE EVENT DATE: 2020
